FAERS Safety Report 7555665-2 (Version None)
Quarter: 2011Q2

REPORT INFORMATION
  Report Type: 
  Country: None (occurrence: None)
  Receive Date: 20110617
  Receipt Date: 20080527
  Transmission Date: 20111010
  Serious: Yes (Hospitalization, Other)
  Sender: FDA-Public Use
  Company Number: PHHY2008US07138

PATIENT
  Sex: Male
  Weight: 75.7 kg

DRUGS (2)
  1. EXJADE [Suspect]
     Indication: APLASTIC ANAEMIA
     Dosage: 1000 MG, QD
     Route: 048
     Dates: start: 20080429, end: 20080503
  2. EXJADE [Suspect]
     Indication: IRON OVERLOAD
     Dosage: 1000 MG, QD
     Dates: start: 20080105, end: 20080605

REACTIONS (4)
  - ASTHENIA [None]
  - FEBRILE NEUTROPENIA [None]
  - PYREXIA [None]
  - DEHYDRATION [None]
